FAERS Safety Report 17910464 (Version 2)
Quarter: 2020Q2

REPORT INFORMATION
  Report Type: Spontaneous
  Country: US (occurrence: US)
  Receive Date: 20200617
  Receipt Date: 20200617
  Transmission Date: 20200714
  Serious: No
  Sender: FDA-Public Use
  Company Number: US-JNJFOC-20200620998

PATIENT
  Sex: Female

DRUGS (1)
  1. IMODIUM A-D [Suspect]
     Active Substance: LOPERAMIDE HYDROCHLORIDE
     Indication: DIARRHOEA
     Dosage: 2 PILLS EVERY 2-3 HOURS (24 PILLS) A DAY (ON BAD DAYS), GOOD DAYS (12 PILLS)?RX:6 PILLS A DAY
     Route: 065

REACTIONS (2)
  - Product blister packaging issue [Unknown]
  - Incorrect dose administered [Unknown]
